FAERS Safety Report 10067461 (Version 1)
Quarter: 2014Q2

REPORT INFORMATION
  Report Type: Spontaneous
  Country: GB (occurrence: None)
  Receive Date: 20140407
  Receipt Date: 20140407
  Transmission Date: 20141212
  Serious: Yes (Life-Threatening)
  Sender: FDA-Public Use
  Company Number: 2271006

PATIENT
  Age: 73 Year
  Sex: Male

DRUGS (6)
  1. (VANCOMYCIN HYDROCHLORIDE) [Suspect]
     Indication: PNEUMONIA
     Route: 042
     Dates: start: 20140305, end: 20140305
  2. (OMEPRAZOLE) [Concomitant]
  3. (GABAPENTIN) [Concomitant]
  4. (DIGOXIN) [Concomitant]
  5. (WARFARIN) [Concomitant]
  6. (BISOPROLOL) [Concomitant]

REACTIONS (1)
  - Angioedema [None]
